FAERS Safety Report 9014055 (Version 1)
Quarter: 2013Q1

REPORT INFORMATION
  Report Type: Spontaneous
  Country: US (occurrence: US)
  Receive Date: 20130115
  Receipt Date: 20130115
  Transmission Date: 20140127
  Serious: Yes (Other)
  Sender: FDA-Public Use
  Company Number: US-009507513-1301USA003349

PATIENT
  Age: 32 Year
  Sex: Female

DRUGS (4)
  1. MONTELUKAST SODIUM [Suspect]
     Indication: ASTHMA
     Route: 065
  2. FLUTICASONE PROPIONATE (+) SALMETEROL XINAFOATE [Suspect]
     Dosage: 250/50 MG, QID
     Route: 055
  3. FLUTICASONE PROPIONATE [Suspect]
     Dosage: 250 UG, QID
  4. AMITRIPTYLINE HYDROCHLORIDE [Suspect]
     Route: 065

REACTIONS (2)
  - Drug ineffective [Unknown]
  - Asthma [Unknown]
